FAERS Safety Report 7301473-7 (Version None)
Quarter: 2011Q1

REPORT INFORMATION
  Report Type: 
  Country: None (occurrence: None)
  Receive Date: 20110218
  Receipt Date: 20110211
  Transmission Date: 20110831
  Serious: Yes (Hospitalization, Other)
  Sender: FDA-Public Use
  Company Number: US-ABBOTT-11P-163-0703105-00

PATIENT
  Sex: Female
  Weight: 70.37 kg

DRUGS (10)
  1. LIPITOR [Concomitant]
     Indication: PRODUCT USED FOR UNKNOWN INDICATION
  2. METHOTREXATE [Concomitant]
     Indication: PRODUCT USED FOR UNKNOWN INDICATION
  3. CELEBREX [Concomitant]
     Indication: PRODUCT USED FOR UNKNOWN INDICATION
  4. HUMIRA [Suspect]
  5. HUMIRA [Suspect]
     Indication: PRODUCT USED FOR UNKNOWN INDICATION
     Dates: start: 20040101, end: 20080801
  6. METOPROLOL [Concomitant]
     Indication: PRODUCT USED FOR UNKNOWN INDICATION
  7. GLIPIZIDE [Concomitant]
     Indication: PRODUCT USED FOR UNKNOWN INDICATION
  8. MULTIVITAMIN [Concomitant]
     Indication: PRODUCT USED FOR UNKNOWN INDICATION
  9. ASA [Concomitant]
     Indication: PRODUCT USED FOR UNKNOWN INDICATION
  10. PREDNISONE [Concomitant]
     Indication: PRODUCT USED FOR UNKNOWN INDICATION

REACTIONS (16)
  - COELIAC ARTERY STENOSIS [None]
  - ABDOMINAL PAIN UPPER [None]
  - LUNG NEOPLASM MALIGNANT [None]
  - COUGH [None]
  - MUCOSAL DISCOLOURATION [None]
  - BLOOD GLUCOSE INCREASED [None]
  - MESENTERIC OCCLUSION [None]
  - DYSPHONIA [None]
  - CHEST X-RAY ABNORMAL [None]
  - MESENTERIC VASCULAR INSUFFICIENCY [None]
  - ARTHRALGIA [None]
  - CYSTITIS [None]
  - VOMITING [None]
  - URETERIC OBSTRUCTION [None]
  - NASOPHARYNGITIS [None]
  - UROSEPSIS [None]
